FAERS Safety Report 13443279 (Version 1)
Quarter: 2017Q2

REPORT INFORMATION
  Report Type: Spontaneous
  Country: US (occurrence: US)
  Receive Date: 20170414
  Receipt Date: 20170414
  Transmission Date: 20170830
  Serious: No
  Sender: FDA-Public Use
  Company Number: PHEH2017US010842

PATIENT
  Age: 25 Year
  Sex: Male
  Weight: 52.1 kg

DRUGS (1)
  1. GLEEVEC [Suspect]
     Active Substance: IMATINIB MESYLATE
     Indication: CHRONIC MYELOID LEUKAEMIA
     Dosage: 400 MG, QD
     Route: 048
     Dates: start: 20170411

REACTIONS (4)
  - Nausea [Not Recovered/Not Resolved]
  - Decreased appetite [Unknown]
  - Disturbance in attention [Unknown]
  - Discomfort [Unknown]

NARRATIVE: CASE EVENT DATE: 20170411
